FAERS Safety Report 24727744 (Version 1)
Quarter: 2024Q4

REPORT INFORMATION
  Report Type: Spontaneous
  Country: CN (occurrence: CN)
  Receive Date: 20241212
  Receipt Date: 20241212
  Transmission Date: 20250115
  Serious: Yes (Hospitalization)
  Sender: ELI LILLY AND COMPANY
  Company Number: CN-Merck Healthcare KGaA-2024064053

PATIENT
  Age: 62 Year
  Sex: Male
  Weight: 60 kg

DRUGS (10)
  1. ERBITUX [Suspect]
     Active Substance: CETUXIMAB
     Indication: Colon cancer
     Dosage: 0.3 G, UNKNOWN
     Route: 041
     Dates: start: 20240219, end: 20240219
  2. ERBITUX [Suspect]
     Active Substance: CETUXIMAB
     Dosage: 0.5 G, UNKNOWN
     Route: 041
     Dates: start: 20240219, end: 20240219
  3. FLUOROURACIL [Suspect]
     Active Substance: FLUOROURACIL
     Indication: Colon cancer
     Route: 050
     Dates: start: 20240219, end: 20240219
  4. FLUOROURACIL [Suspect]
     Active Substance: FLUOROURACIL
     Route: 050
     Dates: start: 20240219, end: 20240219
  5. IRINOTECAN HYDROCHLORIDE [Suspect]
     Active Substance: IRINOTECAN HYDROCHLORIDE
     Indication: Colon cancer
     Route: 041
     Dates: start: 20240219, end: 20240219
  6. SODIUM CHLORIDE [Concomitant]
     Active Substance: SODIUM CHLORIDE
     Indication: Colon cancer
     Dosage: 20 ML, DAILY
     Route: 050
     Dates: start: 20240219, end: 20240219
  7. SODIUM CHLORIDE [Concomitant]
     Active Substance: SODIUM CHLORIDE
     Dosage: 70 ML, DAILY
     Route: 050
     Dates: start: 20240219, end: 20240219
  8. SODIUM CHLORIDE [Concomitant]
     Active Substance: SODIUM CHLORIDE
     Dosage: 250 ML, DAILY
     Route: 041
     Dates: start: 20240219, end: 20240219
  9. SODIUM CHLORIDE [Concomitant]
     Active Substance: SODIUM CHLORIDE
     Dosage: 30 ML, DAILY
     Route: 041
     Dates: start: 20240219, end: 20240219
  10. SODIUM CHLORIDE [Concomitant]
     Active Substance: SODIUM CHLORIDE
     Dosage: 500 ML, DAILY
     Route: 041
     Dates: start: 20240219

REACTIONS (1)
  - Myelosuppression [Recovered/Resolved]

NARRATIVE: CASE EVENT DATE: 20240228
